FAERS Safety Report 12563107 (Version 3)
Quarter: 2016Q4

REPORT INFORMATION
  Report Type: Spontaneous
  Country: DE (occurrence: DE)
  Receive Date: 20160715
  Receipt Date: 20161128
  Transmission Date: 20170207
  Serious: Yes (Death, Life-Threatening, Hospitalization)
  Sender: FDA-Public Use
  Company Number: DE-MYLANLABS-2016M1028751

PATIENT

DRUGS (4)
  1. PARACETAMOL [Suspect]
     Active Substance: ACETAMINOPHEN
     Indication: ANALGESIC THERAPY
     Dosage: UNK
     Route: 065
     Dates: start: 20160622
  2. IMODIUM [Suspect]
     Active Substance: LOPERAMIDE HYDROCHLORIDE
     Indication: PRODUCT USED FOR UNKNOWN INDICATION
     Dosage: UNK
     Route: 065
  3. CHININ [Interacting]
     Active Substance: QUININE HYDROCHLORIDE
     Indication: PRODUCT USED FOR UNKNOWN INDICATION
     Dosage: UNK
     Route: 048
     Dates: start: 20160622, end: 20160622
  4. LOPERAMIDE [Suspect]
     Active Substance: LOPERAMIDE
     Indication: GASTROENTERITIS
     Dosage: UNK (EVENING SHE TOOK 2 TABLETS OF LOPERAMID, ON THE FOLLOWING MORNING - 1 TABLET)
     Route: 048
     Dates: start: 20160622, end: 20160623

REACTIONS (7)
  - Disturbance in attention [Unknown]
  - Brain injury [Fatal]
  - Coma [Unknown]
  - Gastroenteritis [Unknown]
  - Cardiac arrest [Fatal]
  - Aspiration [Unknown]
  - Drug interaction [Unknown]

NARRATIVE: CASE EVENT DATE: 20160623
